FAERS Safety Report 25889710 (Version 3)
Quarter: 2025Q4

REPORT INFORMATION
  Report Type: Report from Study
  Country: CA (occurrence: CA)
  Receive Date: 20251007
  Receipt Date: 20251111
  Transmission Date: 20260118
  Serious: Yes (Other)
  Sender: SAMSUNG BIOEPIS
  Company Number: CA-SAMSUNG BIOEPIS-SB-2025-33200

PATIENT
  Age: 12 Year
  Sex: Female

DRUGS (10)
  1. RENFLEXIS [Suspect]
     Active Substance: INFLIXIMAB-ABDA
     Indication: Crohn^s disease
     Dosage: SECOND INFUSION ON 16-SEP-2025
     Dates: start: 20250903
  2. RENFLEXIS [Suspect]
     Active Substance: INFLIXIMAB-ABDA
     Dosage: SECOND INFUSION ON 16-SEP-2025
     Dates: start: 20250903
  3. RENFLEXIS [Suspect]
     Active Substance: INFLIXIMAB-ABDA
     Route: 042
     Dates: start: 20250903
  4. AZATHIOPRINE [Concomitant]
     Active Substance: AZATHIOPRINE
     Indication: Product used for unknown indication
     Dosage: 1+1/2 TABLET 1 TIME A DAY AT LUNCH;
     Dates: start: 20250821
  5. ACETAMINOPHEN [Concomitant]
     Active Substance: ACETAMINOPHEN
     Indication: Product used for unknown indication
     Dosage: 1 TABLET (500MG) ORALLY 15-30 MINUTES PRIOR TO?INFLIXIMAB INFUSION
     Dates: start: 20250821
  6. CHOLECALCIFEROL [Concomitant]
     Active Substance: CHOLECALCIFEROL
     Indication: Product used for unknown indication
     Dosage: CAPSULE;
     Dates: start: 20251008
  7. RIVA LANSOPRAZOLE [Concomitant]
     Indication: Product used for unknown indication
     Dates: start: 20250314
  8. SLYND [Concomitant]
     Active Substance: DROSPIRENONE
     Indication: Product used for unknown indication
  9. SOLU-CORTEF [Concomitant]
     Active Substance: HYDROCORTISONE SODIUM SUCCINATE
     Indication: Product used for unknown indication
     Dosage: RECONSTITUTE AND MAKE AN INJ. 250MG IV 15 TO 30 MINUTES PRIOR TO THE RENFLEXIS INFUSION
     Dates: start: 20250821
  10. XARELTO [Concomitant]
     Active Substance: RIVAROXABAN
     Indication: Product used for unknown indication
     Dosage: 1 TABLET 1 TIME A DAY WHEN EATING FOR 45 DAYS;
     Dates: start: 20251007

REACTIONS (8)
  - Deep vein thrombosis [Recovering/Resolving]
  - Infusion site thrombosis [Recovering/Resolving]
  - Abdominal pain [Not Recovered/Not Resolved]
  - Faeces hard [Unknown]
  - Abdominal distension [Unknown]
  - Fatigue [Not Recovered/Not Resolved]
  - Nausea [Not Recovered/Not Resolved]
  - Product use issue [Unknown]

NARRATIVE: CASE EVENT DATE: 20250927
